FAERS Safety Report 6609778-X (Version None)
Quarter: 2010Q1

REPORT INFORMATION
  Report Type: 
  Country: None (occurrence: None)
  Receive Date: 20100302
  Receipt Date: 20100216
  Transmission Date: 20100710
  Serious: Yes (Other)
  Sender: FDA-Public Use
  Company Number: PHHY2010GB02161

PATIENT
  Sex: Female

DRUGS (11)
  1. CLOZARIL [Suspect]
     Indication: SCHIZOPHRENIA
     Dosage: UNK
     Dates: start: 20050722, end: 20100104
  2. VENLAFAXINE [Suspect]
     Indication: DEPRESSION
     Dosage: 150 MG
     Route: 048
     Dates: end: 20090101
  3. CALCICHEW D3 [Concomitant]
     Dosage: 2 TABLETS DAILY
     Route: 048
  4. VALPROATE BISMUTH [Concomitant]
     Indication: AFFECTIVE DISORDER
     Dosage: 1 G
     Route: 048
  5. DIAZEPAM [Concomitant]
     Indication: ANXIETY
     Dosage: 5MG BD
     Route: 048
  6. FUROSEMIDE [Concomitant]
     Dosage: 40 MG/ OD
  7. GLICLAZIDE [Concomitant]
     Dosage: 160MG BD
     Route: 048
  8. LEVOTHYROXINE [Concomitant]
     Dosage: 100UG
     Route: 048
  9. METFORMIN HCL [Concomitant]
     Dosage: 850MG OD
  10. EZETIMIBE/SIMVASTATIN [Concomitant]
     Dosage: UNK
     Route: 048
  11. ZOPICLONE [Concomitant]
     Dosage: UNK
     Route: 048

REACTIONS (2)
  - ELECTROCARDIOGRAM QT PROLONGED [None]
  - HYPOTENSION [None]
